FAERS Safety Report 5607915-7 (Version None)
Quarter: 2008Q1

REPORT INFORMATION
  Report Type: 
  Country: None (occurrence: None)
  Receive Date: 20080130
  Receipt Date: 20080116
  Transmission Date: 20080703
  Serious: Yes (Death)
  Sender: FDA-Public Use
  Company Number: CA-JNJFOC-20040804268

PATIENT
  Sex: Female

DRUGS (9)
  1. DURAGESIC-100 [Suspect]
     Indication: PAIN
     Route: 062
  2. PANTOLOL [Concomitant]
     Route: 048
  3. CARDIZEM [Concomitant]
     Route: 048
  4. MOBIC [Concomitant]
     Route: 048
  5. ATIVAN [Concomitant]
     Route: 048
  6. CLONAZEPAM [Concomitant]
     Route: 048
  7. ASPIRIN [Concomitant]
     Route: 048
  8. ZOLOFT [Concomitant]
     Route: 048
  9. ETHANOL [Concomitant]
     Route: 065

REACTIONS (1)
  - DRUG TOXICITY [None]
